FAERS Safety Report 5987195-3 (Version None)
Quarter: 2008Q4

REPORT INFORMATION
  Report Type: 
  Country: None (occurrence: None)
  Receive Date: 20081209
  Receipt Date: 20081128
  Transmission Date: 20090506
  Serious: Yes (Hospitalization, Other)
  Sender: FDA-Public Use
  Company Number: GB-ELI_LILLY_AND_COMPANY-GB200812000202

PATIENT
  Age: 71 Year
  Sex: Female

DRUGS (7)
  1. BYETTA [Suspect]
     Indication: DIABETES MELLITUS
     Dosage: 5 UG, 2/D
     Route: 058
     Dates: start: 20070101, end: 20081107
  2. ASPIRIN [Concomitant]
     Dosage: 75 MG, DAILY (1/D)
     Route: 065
  3. CANDESARTAN [Concomitant]
     Dosage: 16 MG, DAILY (1/D)
     Route: 050
  4. FELODIPINE [Concomitant]
     Dosage: 5 MG, DAILY (1/D)
     Route: 048
  5. METFORMIN HCL [Concomitant]
     Dosage: 1 G, 2/D
     Route: 013
  6. SIMVASTATIN [Concomitant]
     Dosage: 40 MG, DAILY (1/D)
     Route: 065
  7. SPIRONOLACTONE [Concomitant]
     Dosage: 50 MG, DAILY (1/D)
     Route: 048

REACTIONS (1)
  - PANCREATITIS [None]
